FAERS Safety Report 9499529 (Version 3)
Quarter: 2013Q4

REPORT INFORMATION
  Report Type: Spontaneous
  Country: US (occurrence: None)
  Receive Date: 20130107
  Receipt Date: 20131226
  Transmission Date: 20140711
  Serious: Yes (Other)
  Sender: FDA-Public Use
  Company Number: PHEH2012US022509

PATIENT
  Age: 29 Year
  Sex: Female
  Weight: 72.6 kg

DRUGS (10)
  1. GILENYA [Suspect]
     Indication: MULTIPLE SCLEROSIS
     Route: 048
     Dates: start: 20121002
  2. NEURONTIN [Concomitant]
  3. DEPAKOTE [Concomitant]
  4. BUSPAR [Concomitant]
  5. NAPROXEN [Concomitant]
  6. ORTHO TRI-CYCLEN [Concomitant]
  7. SIMVASTATIN [Concomitant]
  8. LEVOTHYROXINE (LEVOTHYROXINE) [Concomitant]
  9. SERTRALINE (SERTRALINE) [Concomitant]
  10. ORAL CONTRACEPTIVE NOS [Concomitant]

REACTIONS (14)
  - Tremor [None]
  - Chest pain [None]
  - Anxiety [None]
  - Chest discomfort [None]
  - Weight decreased [None]
  - Visual impairment [None]
  - Multiple sclerosis relapse [None]
  - Dysphemia [None]
  - Visual field defect [None]
  - Abdominal pain upper [None]
  - Dizziness [None]
  - Influenza [None]
  - Diplopia [None]
  - Paraesthesia [None]
